FAERS Safety Report 6741571-X (Version None)
Quarter: 2010Q2

REPORT INFORMATION
  Report Type: 
  Country: None (occurrence: None)
  Receive Date: 20100526
  Receipt Date: 20100517
  Transmission Date: 20101027
  Serious: Yes (Other)
  Sender: FDA-Public Use
  Company Number: US-ABBOTT-10P-163-0645563-00

PATIENT
  Sex: Female

DRUGS (2)
  1. HUMIRA [Suspect]
     Indication: CROHN'S DISEASE
     Dates: start: 20091201, end: 20100401
  2. HUMIRA [Suspect]
     Dates: start: 20100401

REACTIONS (3)
  - CEREBROVASCULAR ACCIDENT [None]
  - DEAFNESS [None]
  - EAR INFECTION [None]
